FAERS Safety Report 6034832-3 (Version None)
Quarter: 2009Q1

REPORT INFORMATION
  Report Type: 
  Country: None (occurrence: None)
  Receive Date: 20090112
  Receipt Date: 20090106
  Transmission Date: 20090719
  Serious: Yes (Hospitalization)
  Sender: FDA-Public Use
  Company Number: US-JNJFOC-20081102906

PATIENT
  Sex: Male
  Weight: 86.18 kg

DRUGS (1)
  1. ULTRAM ER [Suspect]
     Indication: MIGRAINE
     Route: 048

REACTIONS (2)
  - CARDIAC ARREST [None]
  - GRAND MAL CONVULSION [None]
